FAERS Safety Report 5332122-5 (Version None)
Quarter: 2007Q2

REPORT INFORMATION
  Report Type: 
  Country: None (occurrence: None)
  Receive Date: 20070521
  Receipt Date: 20070503
  Transmission Date: 20071010
  Serious: Yes (Hospitalization)
  Sender: FDA-Public Use
  Company Number: S07-SWI-02038-01

PATIENT
  Age: 85 Year
  Sex: Female

DRUGS (5)
  1. ESCITALOPRAM [Suspect]
     Dosage: 10 MG QD PO
     Route: 048
  2. SEROQUEL [Suspect]
     Dosage: 25 MG QD PO
     Route: 048
  3. TRAZODONE HCL [Suspect]
     Dosage: 100 MG QD PO
     Route: 048
  4. RISPERDAL [Suspect]
     Dosage: 2 MG TID PO
     Route: 048
  5. ZOLPIDEM TARTRATE [Concomitant]

REACTIONS (7)
  - AKINESIA [None]
  - C-REACTIVE PROTEIN INCREASED [None]
  - CEREBRAL ATROPHY [None]
  - DRUG PRESCRIBING ERROR [None]
  - EXTRAPYRAMIDAL DISORDER [None]
  - LOSS OF CONSCIOUSNESS [None]
  - MUSCLE RIGIDITY [None]
